FAERS Safety Report 8216055-2 (Version None)
Quarter: 2012Q1

REPORT INFORMATION
  Report Type: 
  Country: None (occurrence: None)
  Receive Date: 20120316
  Receipt Date: 20120312
  Transmission Date: 20120608
  Serious: Yes (Other)
  Sender: FDA-Public Use
  Company Number: US-ABBOTT-11P-163-0878106-00

PATIENT
  Sex: Male
  Weight: 93.524 kg

DRUGS (5)
  1. FOLIC ACID [Concomitant]
     Indication: VITAMIN SUPPLEMENTATION
  2. HUMIRA [Suspect]
     Indication: RHEUMATOID ARTHRITIS
     Dates: start: 20090101
  3. UNKNOWN BLOOD PRESSURE MEDICATION [Concomitant]
     Indication: PRODUCT USED FOR UNKNOWN INDICATION
  4. UNKNOWN ASTHMA MEDICATION [Concomitant]
     Indication: ASTHMA
  5. METHOTREXATE [Concomitant]
     Indication: PRODUCT USED FOR UNKNOWN INDICATION
     Dosage: 8 TABLETS WEEKLY

REACTIONS (10)
  - DISTURBANCE IN ATTENTION [None]
  - RHINORRHOEA [None]
  - INFLUENZA LIKE ILLNESS [None]
  - UMBILICAL HERNIA [None]
  - PAIN [None]
  - PYREXIA [None]
  - LETHARGY [None]
  - OROPHARYNGEAL PAIN [None]
  - NASOPHARYNGITIS [None]
  - SINUS CONGESTION [None]
